FAERS Safety Report 20982474 (Version 2)
Quarter: 2023Q1

REPORT INFORMATION
  Report Type: Spontaneous
  Country: US (occurrence: US)
  Receive Date: 20220620
  Receipt Date: 20230113
  Transmission Date: 20230418
  Serious: No
  Sender: FDA-Public Use
  Company Number: US-NOVOPROD-917357

PATIENT
  Age: 60 Year
  Sex: Female
  Weight: 136.96 kg

DRUGS (2)
  1. WEGOVY [Suspect]
     Active Substance: SEMAGLUTIDE
     Dosage: 1.7 MG
     Route: 058
  2. WEGOVY [Suspect]
     Active Substance: SEMAGLUTIDE
     Indication: Weight control
     Dosage: 0.5 MG,
     Route: 058
     Dates: start: 202202

REACTIONS (2)
  - Appetite disorder [Not Recovered/Not Resolved]
  - Device leakage [Not Recovered/Not Resolved]

NARRATIVE: CASE EVENT DATE: 20220301
